FAERS Safety Report 7365773-7 (Version None)
Quarter: 2011Q1

REPORT INFORMATION
  Report Type: 
  Country: None (occurrence: None)
  Receive Date: 20110322
  Receipt Date: 20110316
  Transmission Date: 20110831
  Serious: Yes (Other)
  Sender: FDA-Public Use
  Company Number: US-B.I. PHARMACEUTICALS,INC./RIDGEFIELD-2011-BP-08221BP

PATIENT
  Sex: Female

DRUGS (1)
  1. SPIRIVA [Suspect]
     Dosage: 18 MCG
     Route: 055
     Dates: start: 20100301

REACTIONS (6)
  - MYOCARDIAL INFARCTION [None]
  - DYSPNOEA [None]
  - ROAD TRAFFIC ACCIDENT [None]
  - DYSPHONIA [None]
  - RIB FRACTURE [None]
  - FATIGUE [None]
